FAERS Safety Report 6240193-7 (Version None)
Quarter: 2009Q2

REPORT INFORMATION
  Report Type: 
  Country: None (occurrence: None)
  Receive Date: 20090623
  Receipt Date: 20080718
  Transmission Date: 20091009
  Serious: No
  Sender: FDA-Public Use
  Company Number: US-ASTRAZENECA-2007UW20815

PATIENT
  Age: 78 Year
  Sex: Female

DRUGS (5)
  1. PULMICORT FLEXHALER [Suspect]
     Indication: COUGH
     Dosage: 180 UG 4 PUFFS
     Route: 055
  2. PULMICORT FLEXHALER [Suspect]
     Dosage: 180 UG 2 PUFFS DAILY
     Route: 055
  3. HIGH BLOOD PRESSURE PILL [Concomitant]
  4. BENICAR [Concomitant]
  5. GLUCOSAMINE [Concomitant]

REACTIONS (4)
  - ALOPECIA [None]
  - CHEST PAIN [None]
  - DRY SKIN [None]
  - SKIN DISORDER [None]
